FAERS Safety Report 5489400-9 (Version None)
Quarter: 2007Q4

REPORT INFORMATION
  Report Type: 
  Country: None (occurrence: None)
  Receive Date: 20071018
  Receipt Date: 20071015
  Transmission Date: 20080405
  Serious: Yes (Death)
  Sender: FDA-Public Use
  Company Number: US-BAYER-200711966BWH

PATIENT
  Age: 66 Year
  Sex: Female
  Weight: 85 kg

DRUGS (14)
  1. SORAFENIB [Suspect]
     Indication: NON-SMALL CELL LUNG CANCER STAGE III
     Dosage: TOTAL DAILY DOSE: 200 MG  UNIT DOSE: 200 MG
     Route: 048
     Dates: start: 20070515, end: 20070621
  2. CISPLATIN [Suspect]
     Indication: NON-SMALL CELL LUNG CANCER STAGE III
     Route: 042
     Dates: start: 20070515, end: 20070618
  3. ETOPOSIDE [Suspect]
     Indication: NON-SMALL CELL LUNG CANCER STAGE III
     Route: 042
     Dates: start: 20070515, end: 20070615
  4. PRILOSEC [Concomitant]
     Indication: GASTROOESOPHAGEAL REFLUX DISEASE
     Dates: start: 20070301
  5. TESSALON [Concomitant]
     Indication: COUGH
     Dates: start: 20070502
  6. CELEBREX [Concomitant]
     Indication: ARTHRITIS
     Dates: start: 20020101
  7. SYNTHROID [Concomitant]
     Indication: HYPOTHYROIDISM
     Dates: start: 20020101
  8. METFORMIN [Concomitant]
     Indication: DIABETES MELLITUS
     Dosage: TOTAL DAILY DOSE: 2000 MG
     Dates: start: 20070101
  9. QUINARETIC [Concomitant]
     Indication: HYPERTENSION
     Dates: start: 20070101
  10. ACTONEL [Concomitant]
     Indication: OSTEOPOROSIS
     Dates: start: 20050101
  11. PHENTERMINE [Concomitant]
     Indication: MEDICAL DIET
     Dates: start: 20070101
  12. IMODIUM A-D [Concomitant]
     Indication: DIARRHOEA
     Dates: start: 20070531
  13. LEVAQUIN [Concomitant]
     Dates: start: 20070530, end: 20070605
  14. PROCHLORPERAZINE [Concomitant]
     Indication: NAUSEA
     Dates: start: 20070518

REACTIONS (3)
  - CARDIO-RESPIRATORY ARREST [None]
  - PULMONARY HAEMORRHAGE [None]
  - SEPSIS [None]
